FAERS Safety Report 9292385 (Version 2)
Quarter: 2014Q2

REPORT INFORMATION
  Report Type: Spontaneous
  Country: US (occurrence: US)
  Receive Date: 20130516
  Receipt Date: 20140403
  Transmission Date: 20141212
  Serious: Yes (Hospitalization, Other)
  Sender: FDA-Public Use
  Company Number: US-BAYER-2013-060530

PATIENT
  Age: 26 Year
  Sex: Female
  Weight: 61.22 kg

DRUGS (2)
  1. YASMIN [Suspect]
     Indication: ACNE
     Dosage: UNK
     Dates: start: 2003, end: 2008
  2. YAZ [Suspect]
     Indication: ACNE
     Dosage: UNK
     Dates: start: 2008, end: 201206

REACTIONS (12)
  - Deep vein thrombosis [None]
  - Muscle spasms [None]
  - Pain in extremity [None]
  - Skin discolouration [None]
  - Injury [None]
  - General physical health deterioration [None]
  - Emotional distress [None]
  - Pain [None]
  - Anxiety [None]
  - Cerebrovascular accident [None]
  - Headache [None]
  - Dizziness [None]
